FAERS Safety Report 5008710-2 (Version None)
Quarter: 2006Q2

REPORT INFORMATION
  Report Type: 
  Country: None (occurrence: None)
  Receive Date: 20060519
  Receipt Date: 20060510
  Transmission Date: 20061013
  Serious: Yes (Death, Life-Threatening, Other)
  Sender: FDA-Public Use
  Company Number: 200612407BWH

PATIENT
  Age: 74 Year
  Sex: Female
  Weight: 51.8 kg

DRUGS (39)
  1. TRASYLOL [Suspect]
     Indication: AORTIC VALVE REPLACEMENT
     Dosage: SEE IMAGE
     Dates: start: 20040804
  2. TRASYLOL [Suspect]
     Indication: AORTIC VALVE REPLACEMENT
     Dosage: SEE IMAGE
     Dates: start: 20040804
  3. PREOPERATIVE ANESTHESIA (ANAESTHETICS) [Suspect]
  4. PROTAMINE SULFATE [Suspect]
  5. SYNTHROID [Concomitant]
  6. LESCOL [Concomitant]
  7. PROPACET 100 [Concomitant]
  8. IRON SULFATETHIAMIN COMPOUND TAB [Concomitant]
  9. CALCIUM GLUCONATE [Concomitant]
  10. DIGOXIN [Concomitant]
  11. WARFARIN [Concomitant]
  12. FOSAMAX [Concomitant]
  13. ASCORBIC ACID [Concomitant]
  14. HEPARIN [Concomitant]
  15. NEO-SYNEPHRINE [Concomitant]
  16. ALBUMIN HUMAN ^BERNA^ [Concomitant]
  17. NORMOSOL [Concomitant]
  18. MANNITOL [Concomitant]
  19. LASIX [Concomitant]
  20. PROTAMINE SULFATE [Concomitant]
  21. SONATA [Concomitant]
  22. ZITHROMAX [Concomitant]
  23. AMIODARONE [Concomitant]
  24. VITAMINS [Concomitant]
  25. POTASSIUM CHLORIDE [Concomitant]
  26. VERSED [Concomitant]
  27. CEFAZOLIN [Concomitant]
  28. LACTATED RINGER'S [Concomitant]
  29. NORMAL SALINE [Concomitant]
  30. DOPAMINE [Concomitant]
  31. EPINEPHRINE [Concomitant]
  32. ZANTAC [Concomitant]
  33. SOLU-CORTEF [Concomitant]
  34. NACL [Concomitant]
  35. KANAMYCIN SULFATE [Concomitant]
  36. BENADRYL ^WARNER-LAMBERT^ /USA/ [Concomitant]
  37. INSULIN [Concomitant]
  38. SOLU-CORTEF [Concomitant]
  39. MAGNESIUM SULFATE [Concomitant]

REACTIONS (22)
  - AKINESIA [None]
  - ANAPHYLACTIC REACTION [None]
  - AORTIC VALVE INCOMPETENCE [None]
  - ATELECTASIS [None]
  - ATRIAL FIBRILLATION [None]
  - CARDIAC ARREST [None]
  - CARDIAC PROCEDURE COMPLICATION [None]
  - CARDIAC VALVE DISEASE [None]
  - CARDIOMEGALY [None]
  - ENDOCARDITIS [None]
  - HYPOTENSION [None]
  - LUNG HYPERINFLATION [None]
  - METABOLIC ACIDOSIS [None]
  - OEDEMA [None]
  - ORGAN FAILURE [None]
  - PLEURAL EFFUSION [None]
  - PNEUMOTHORAX [None]
  - POST PROCEDURAL COMPLICATION [None]
  - RESPIRATORY FAILURE [None]
  - SURGICAL PROCEDURE REPEATED [None]
  - VENTRICULAR FIBRILLATION [None]
  - VENTRICULAR HYPOKINESIA [None]
